FAERS Safety Report 4350463-5 (Version None)
Quarter: 2004Q2

REPORT INFORMATION
  Report Type: 
  Country: None (occurrence: None)
  Receive Date: 20040427
  Receipt Date: 20040419
  Transmission Date: 20050107
  Serious: Yes (Other)
  Sender: FDA-Public Use
  Company Number: 2004209948US

PATIENT
  Age: 51 Year
  Sex: Female

DRUGS (5)
  1. DOXORUBICIN PFS(DOXORUBICIN HYDROCHLORIDE) SOLUTION, STERILE [Suspect]
     Indication: LYMPHOMA
     Dosage: 95 MG/M2, CYCLIC, Q28D
     Dates: start: 20040126
  2. CLOZAPINE [Suspect]
     Indication: SCHIZOPHRENIA
     Dosage: 800-350 MG QD, ORAL
     Route: 048
     Dates: start: 20020201
  3. CYTOXAN [Suspect]
     Indication: LYMPHOMA
     Dosage: 750 MQ/M2 Q28D
     Dates: start: 20040126
  4. ONCOVIN [Suspect]
     Indication: LYMPHOMA
     Dosage: 1.4 MG/M2, CYCLIC, Q28D
     Dates: start: 20040126
  5. RITUXAN [Suspect]
     Indication: LYMPHOMA
     Dosage: 375 MG/M2, CYCLIC, Q28D
     Dates: start: 20040126

REACTIONS (1)
  - AGRANULOCYTOSIS [None]
